FAERS Safety Report 10218609 (Version 1)
Quarter: 2014Q2

REPORT INFORMATION
  Report Type: Spontaneous
  Country: US (occurrence: US)
  Receive Date: 20140605
  Receipt Date: 20140605
  Transmission Date: 20141212
  Serious: No
  Sender: FDA-Public Use
  Company Number: US-PFIZER INC-2014149461

PATIENT
  Sex: Female

DRUGS (1)
  1. LYRICA [Suspect]
     Indication: FIBROMYALGIA
     Dosage: 75 MG, UNK

REACTIONS (5)
  - Drug hypersensitivity [Unknown]
  - Reaction to drug excipients [Unknown]
  - Urticaria [Unknown]
  - Rash [Unknown]
  - Dyspnoea [Unknown]
